FAERS Safety Report 8320339-7 (Version None)
Quarter: 2012Q2

REPORT INFORMATION
  Report Type: 
  Country: None (occurrence: None)
  Receive Date: 20120430
  Receipt Date: 20120425
  Transmission Date: 20120825
  Serious: No
  Sender: FDA-Public Use
  Company Number: US-PFIZER INC-2012103636

PATIENT
  Sex: Male
  Weight: 64.853 kg

DRUGS (14)
  1. LYRICA [Suspect]
     Indication: MYALGIA
     Dosage: 100 MG, 3X/DAY
     Route: 048
  2. TERAZOSIN [Concomitant]
     Indication: PROSTATIC DISORDER
     Dosage: 2 MG, DAILY
  3. LYRICA [Suspect]
     Indication: BACK PAIN
  4. LYRICA [Suspect]
     Indication: BONE DISORDER
  5. GABAPENTIN [Concomitant]
     Dosage: 800 MG, 3X/DAY
  6. METFORMIN [Concomitant]
     Dosage: 850 MG, 3X/DAY
  7. LYRICA [Suspect]
     Indication: SCIATICA
  8. SIMVASTATIN [Concomitant]
     Dosage: 40 MG, DAILY
  9. OXYCODONE [Concomitant]
     Dosage: 30 MG, DAILY
  10. LYRICA [Suspect]
     Indication: NECK PAIN
  11. LYRICA [Suspect]
     Indication: ARTHRITIS
  12. OXYCONTIN [Concomitant]
     Dosage: 40 MG, DAILY
  13. TRAZODONE [Concomitant]
     Dosage: 300 MG, DAILY
     Route: 048
  14. OMEPRAZOLE [Concomitant]
     Indication: GASTROOESOPHAGEAL REFLUX DISEASE
     Dosage: 20 MG, DAILY

REACTIONS (2)
  - PAIN [None]
  - MALAISE [None]
